FAERS Safety Report 11347635 (Version 1)
Quarter: 2015Q3

REPORT INFORMATION
  Report Type: Spontaneous
  Country: US (occurrence: US)
  Receive Date: 20150803
  Receipt Date: 20150803
  Transmission Date: 20151125
  Serious: No
  Sender: FDA-Public Use
  Company Number: US-ELI_LILLY_AND_COMPANY-US201108008014

PATIENT
  Age: 56 Year
  Sex: Male

DRUGS (2)
  1. STRATTERA [Suspect]
     Active Substance: ATOMOXETINE HYDROCHLORIDE
     Indication: NERVOUS SYSTEM DISORDER
     Dosage: 25 MG, UNK
     Dates: start: 20110524, end: 20110526
  2. ATIVAN [Concomitant]
     Active Substance: LORAZEPAM
     Dosage: 1 MG, UNKNOWN

REACTIONS (6)
  - Off label use [Recovered/Resolved]
  - Thinking abnormal [Unknown]
  - Central nervous system stimulation [Unknown]
  - Agitation [Unknown]
  - Anger [Unknown]
  - Insomnia [Unknown]

NARRATIVE: CASE EVENT DATE: 20110524
